FAERS Safety Report 9187601 (Version 2)
Quarter: 2013Q2

REPORT INFORMATION
  Report Type: Spontaneous
  Country: FR (occurrence: FR)
  Receive Date: 20130325
  Receipt Date: 20130612
  Transmission Date: 20140414
  Serious: Yes (Life-Threatening, Hospitalization, Other)
  Sender: FDA-Public Use
  Company Number: FR-ELI_LILLY_AND_COMPANY-FR201303006133

PATIENT
  Age: 56 Year
  Sex: Male
  Weight: 66 kg

DRUGS (7)
  1. ALIMTA [Suspect]
     Indication: LUNG NEOPLASM MALIGNANT
     Dosage: 900 MG, UNK
     Route: 042
  2. ALIMTA [Suspect]
     Dosage: 670 MG, UNK
  3. TARCEVA [Concomitant]
     Indication: LUNG ADENOCARCINOMA
     Dosage: 150 MG, UNK
     Route: 048
     Dates: start: 20071129, end: 20130302
  4. SPECIAFOLDINE [Concomitant]
     Indication: PREMEDICATION
  5. INEXIUM [Concomitant]
     Indication: PREMEDICATION
  6. DEXAMETHASONE [Concomitant]
     Indication: PREMEDICATION
  7. VITAMIN B12 [Concomitant]

REACTIONS (5)
  - Hemiplegia [Recovered/Resolved]
  - Aphasia [Recovered/Resolved]
  - Neurotoxicity [Unknown]
  - Skin toxicity [Unknown]
  - Haematotoxicity [Unknown]
